FAERS Safety Report 5106624-0 (Version None)
Quarter: 2006Q4

REPORT INFORMATION
  Report Type: 
  Country: None (occurrence: None)
  Receive Date: 20060731
  Receipt Date: 20050715
  Transmission Date: 20070319
  Serious: Yes (Other)
  Sender: FDA-Public Use
  Company Number: US-JNJFOC-20050605392

PATIENT
  Age: 18 Year
  Sex: Male
  Weight: 63.5036 kg

DRUGS (2)
  1. RISPERDAL [Suspect]
     Indication: AUTISM
     Dosage: 1 MG, 1 IN 21 DAY
     Dates: start: 19990101, end: 20050601
  2. WELLBUTRIN SR [Concomitant]

REACTIONS (3)
  - HEPATIC ENZYME INCREASED [None]
  - PANCREATITIS [None]
  - PROCTITIS ULCERATIVE [None]
